FAERS Safety Report 7052028-3 (Version None)
Quarter: 2010Q4

REPORT INFORMATION
  Report Type: 
  Country: None (occurrence: None)
  Receive Date: 20101019
  Receipt Date: 20101012
  Transmission Date: 20110411
  Serious: Yes (Other)
  Sender: FDA-Public Use
  Company Number: US-US-EMD SERONO, INC.-7021849

PATIENT
  Sex: Female

DRUGS (4)
  1. REBIF [Suspect]
     Indication: MULTIPLE SCLEROSIS
     Route: 058
     Dates: start: 20071004
  2. VITAMIN D [Concomitant]
     Indication: PROPHYLAXIS
  3. TRICOR [Concomitant]
     Indication: BLOOD CHOLESTEROL INCREASED
  4. VITAMIN B-12 [Concomitant]
     Indication: PROPHYLAXIS
     Route: 048

REACTIONS (1)
  - TRIGEMINAL NEURALGIA [None]
